FAERS Safety Report 9486062 (Version 1)
Quarter: 2013Q3

REPORT INFORMATION
  Report Type: Spontaneous
  Country: US (occurrence: None)
  Receive Date: 20130826
  Receipt Date: 20130826
  Transmission Date: 20140515
  Serious: Yes (Other)
  Sender: FDA-Public Use
  Company Number: SYM-2013-09323

PATIENT
  Sex: Female

DRUGS (1)
  1. DILTIAZEM HCL (DILTIAZEM HYROCHLORIDE) (EXTENDED RELEASE CAPSULES)(DILTIAZEM HYDROCHLORIDE) [Suspect]
     Indication: PRODUCT USED FOR UNKNOWN INDICATION

REACTIONS (4)
  - Visual field defect [None]
  - Cognitive disorder [None]
  - Gait disturbance [None]
  - Trismus [None]
